FAERS Safety Report 16283004 (Version 1)
Quarter: 2019Q2

REPORT INFORMATION
  Report Type: Report from Study
  Country: CO (occurrence: CO)
  Receive Date: 20190507
  Receipt Date: 20190507
  Transmission Date: 20190711
  Serious: Yes (Other)
  Sender: FDA-Public Use
  Company Number: PHHY2019CO101684

PATIENT
  Age: 5 Year
  Sex: Male
  Weight: 15 kg

DRUGS (1)
  1. OMNITROPE [Suspect]
     Active Substance: SOMATROPIN
     Indication: GROWTH HORMONE DEFICIENCY
     Dosage: 0.7 MG, QD
     Route: 058
     Dates: start: 20190226

REACTIONS (2)
  - Blood glucose increased [Not Recovered/Not Resolved]
  - Blood creatinine decreased [Not Recovered/Not Resolved]

NARRATIVE: CASE EVENT DATE: 201903
